FAERS Safety Report 22237667 (Version 1)
Quarter: 2023Q2

REPORT INFORMATION
  Report Type: Spontaneous
  Country: US (occurrence: US)
  Receive Date: 20230421
  Receipt Date: 20230421
  Transmission Date: 20230722
  Serious: Yes (Life-Threatening, Hospitalization, Other)
  Sender: FDA-Public Use
  Company Number: US-SUNPHARMA-2023R1-384394AA

PATIENT
  Age: 39 Year
  Sex: Male

DRUGS (4)
  1. DIVIGEL [Suspect]
     Active Substance: ESTRADIOL
     Indication: Paraphilia
     Dosage: 2 MILLIGRAM, QD
     Route: 065
  2. DUTASTERIDE [Suspect]
     Active Substance: DUTASTERIDE
     Indication: Paraphilia
     Dosage: 0.5 MILLIGRAM, QD
     Route: 065
  3. RISPERIDONE [Suspect]
     Active Substance: RISPERIDONE
     Indication: Hallucination
     Dosage: 0.5 MILLIGRAM, BID
  4. RISPERIDONE [Suspect]
     Active Substance: RISPERIDONE
     Indication: Paranoia
     Dosage: 1 MILLIGRAM, QD, DISCHARGED, AT BEDTIME
     Route: 065

REACTIONS (5)
  - Self-medication [Recovered/Resolved]
  - Pulmonary embolism [Recovered/Resolved]
  - Product use issue [Unknown]
  - Insomnia [Unknown]
  - Product use in unapproved indication [Unknown]
